FAERS Safety Report 16444399 (Version 1)
Quarter: 2019Q3

REPORT INFORMATION
  Report Type: Spontaneous
  Country: US (occurrence: US)
  Receive Date: 20190615
  Receipt Date: 20190615
  Transmission Date: 20191004
  Serious: Yes (Death, Congenital Anomaly)
  Sender: FDA-Public Use
  Company Number: None

PATIENT
  Age: 21 Year
  Sex: Male
  Weight: 65.25 kg

DRUGS (2)
  1. POPPY SEED. [Suspect]
     Active Substance: POPPY SEED
     Indication: SLEEP DISORDER
     Dosage: ?          OTHER ROUTE:MIXED WITH WATER TO MAKE A DRINK?
  2. MORPHINE [Suspect]
     Active Substance: MORPHINE

REACTIONS (2)
  - Unresponsive to stimuli [None]
  - Toxicity to various agents [None]

NARRATIVE: CASE EVENT DATE: 20160221
